FAERS Safety Report 5955230-4 (Version None)
Quarter: 2008Q4

REPORT INFORMATION
  Report Type: 
  Country: None (occurrence: None)
  Receive Date: 20081031
  Receipt Date: 20080707
  Transmission Date: 20090506
  Serious: No
  Sender: FDA-Public Use
  Company Number: 2008PV036057

PATIENT
  Sex: Male

DRUGS (2)
  1. SYMLIN [Suspect]
     Indication: DRUG USE FOR UNKNOWN INDICATION
     Dosage: 30 MCG; SC
     Route: 058
     Dates: start: 20080201
  2. SYMLIN [Suspect]
     Dosage: 30 MCG; SC
     Route: 058
     Dates: start: 20070101, end: 20070101

REACTIONS (2)
  - INJECTION SITE HAEMORRHAGE [None]
  - NAUSEA [None]
